FAERS Safety Report 12867711 (Version 1)
Quarter: 2016Q4

REPORT INFORMATION
  Report Type: Spontaneous
  Country: US (occurrence: US)
  Receive Date: 20161020
  Receipt Date: 20161020
  Transmission Date: 20170207
  Serious: Yes (Other)
  Sender: FDA-Public Use
  Company Number: US-ELI_LILLY_AND_COMPANY-US201610004227

PATIENT
  Sex: Male

DRUGS (3)
  1. LANTUS [Suspect]
     Active Substance: INSULIN GLARGINE
     Indication: PRODUCT USED FOR UNKNOWN INDICATION
     Dosage: UNK UNK, UNKNOWN
     Route: 065
  2. TRULICITY [Suspect]
     Active Substance: DULAGLUTIDE
     Indication: TYPE 2 DIABETES MELLITUS
     Dosage: UNK, WEEKLY (1/W)
     Route: 065
     Dates: end: 201609
  3. HUMALOG [Suspect]
     Active Substance: INSULIN LISPRO
     Indication: PRODUCT USED FOR UNKNOWN INDICATION
     Dosage: UNK UNK, UNKNOWN
     Route: 065

REACTIONS (9)
  - Glycosylated haemoglobin increased [Unknown]
  - Blindness unilateral [Recovering/Resolving]
  - Astigmatism [Recovering/Resolving]
  - Nervous system disorder [Recovering/Resolving]
  - Burning sensation [Recovering/Resolving]
  - Herpes zoster [Recovering/Resolving]
  - Thyroid disorder [Recovering/Resolving]
  - Drug hypersensitivity [Recovering/Resolving]
  - Feeling abnormal [Recovering/Resolving]
